FAERS Safety Report 18573156 (Version 1)
Quarter: 2020Q4

REPORT INFORMATION
  Report Type: Spontaneous
  Country: US (occurrence: US)
  Receive Date: 20201203
  Receipt Date: 20201203
  Transmission Date: 20210114
  Serious: No
  Sender: FDA-Public Use
  Company Number: NVSC2020US317046

PATIENT
  Sex: Female
  Weight: 65.8 kg

DRUGS (1)
  1. AMANTADINE HYDROCHLORIDE. [Suspect]
     Active Substance: AMANTADINE HYDROCHLORIDE
     Indication: PRODUCT USED FOR UNKNOWN INDICATION
     Dosage: 100 MG, UNKNOWN
     Route: 065
     Dates: end: 20201021

REACTIONS (12)
  - Face oedema [Unknown]
  - Blood pressure diastolic increased [Unknown]
  - Oedema peripheral [Unknown]
  - Ligament sprain [Unknown]
  - Blood pressure increased [Unknown]
  - Peripheral swelling [Not Recovered/Not Resolved]
  - Dizziness [Not Recovered/Not Resolved]
  - Hypotonia [Not Recovered/Not Resolved]
  - Balance disorder [Not Recovered/Not Resolved]
  - Swelling of eyelid [Not Recovered/Not Resolved]
  - Dry mouth [Unknown]
  - Cough [Unknown]

NARRATIVE: CASE EVENT DATE: 2020
